FAERS Safety Report 6436091-6 (Version None)
Quarter: 2009Q4

REPORT INFORMATION
  Report Type: 
  Country: None (occurrence: None)
  Receive Date: 20091111
  Receipt Date: 20091030
  Transmission Date: 20100525
  Serious: Yes (Life-Threatening, Hospitalization, Other)
  Sender: FDA-Public Use
  Company Number: JP-PFIZER INC-2009228193

PATIENT
  Age: 70 Year
  Sex: Male
  Weight: 68 kg

DRUGS (5)
  1. CAMPTOSAR [Suspect]
     Indication: RECTAL CANCER
     Dosage: 149.7 MG/M2, 250 MG
     Route: 041
     Dates: start: 20090413, end: 20090413
  2. FLUOROURACIL [Suspect]
     Indication: RECTAL CANCER
     Dosage: 323.4 MG/M2, 540 MG
     Route: 040
     Dates: start: 20090413, end: 20090413
  3. FLUOROURACIL [Suspect]
     Dosage: 1916.2 MG/M2, 3200 MG
     Route: 041
     Dates: start: 20090413, end: 20090413
  4. CALCIUM LEVOFOLINATE [Concomitant]
     Indication: RECTAL CANCER
     Dosage: 161.7 MG/M2, 270 MG
     Route: 041
     Dates: start: 20090413, end: 20090413
  5. AVASTIN [Concomitant]
     Indication: RECTAL CANCER
     Dosage: 330 MG, UNK
     Route: 041
     Dates: start: 20090413, end: 20090413

REACTIONS (7)
  - BLOOD CREATININE INCREASED [None]
  - BLOOD UREA INCREASED [None]
  - DIARRHOEA [None]
  - HAEMOGLOBIN DECREASED [None]
  - LEUKOPENIA [None]
  - NEUTROPENIA [None]
  - THROMBOCYTOPENIA [None]
